FAERS Safety Report 9536027 (Version 1)
Quarter: 2013Q2

REPORT INFORMATION
  Report Type: Spontaneous
  Country: US (occurrence: None)
  Receive Date: 20130507
  Receipt Date: 20130507
  Transmission Date: 20140414
  Serious: Yes (Disabling)
  Sender: FDA-Public Use
  Company Number: PHEH2012US010538

PATIENT
  Age: 33 Year
  Sex: Female
  Weight: 69.4 kg

DRUGS (9)
  1. TASIGNA [Suspect]
     Indication: CHRONIC MYELOID LEUKAEMIA
     Route: 048
     Dates: start: 20120404
  2. AMBIEN (ZOLPIDEM TARTRATE) [Concomitant]
  3. REQUIP (ROPINIROLE HYDROCHLORIDE) [Concomitant]
  4. DEPAKOTE (VALPROATE SEMISODIUM) [Concomitant]
  5. NEURONTIN (GABAPENTIN) [Concomitant]
  6. XANAX (ALPRAZOLAM) [Concomitant]
  7. SINEMET (CARBIDOPA, LEVODOPA) [Concomitant]
  8. OXYCODONE [Concomitant]
  9. TRAZODONE [Concomitant]

REACTIONS (1)
  - Muscular weakness [None]
